FAERS Safety Report 13896882 (Version 8)
Quarter: 2019Q1

REPORT INFORMATION
  Report Type: Spontaneous
  Country: NO (occurrence: NO)
  Receive Date: 20170823
  Receipt Date: 20190221
  Transmission Date: 20190417
  Serious: Yes (Other)
  Sender: FDA-Public Use
  Company Number: NO-IPSEN BIOPHARMACEUTICALS, INC.-2017-09375

PATIENT
  Sex: Female

DRUGS (3)
  1. AZZALURE [Suspect]
     Active Substance: BOTULINUM TOXIN TYPE A
     Indication: OFF LABEL USE
  2. AZZALURE [Suspect]
     Active Substance: BOTULINUM TOXIN TYPE A
     Indication: SKIN WRINKLING
     Dosage: 37.25 UNITS
     Route: 030
     Dates: start: 20150414, end: 20150414
  3. AZZALURE [Suspect]
     Active Substance: BOTULINUM TOXIN TYPE A
     Indication: SKIN WRINKLING
     Dosage: 4 UNITS
     Route: 030
     Dates: start: 20150428, end: 20150428

REACTIONS (23)
  - Vth nerve injury [Not Recovered/Not Resolved]
  - Wrong technique in product usage process [Unknown]
  - Migraine [Recovering/Resolving]
  - Dysphagia [Recovering/Resolving]
  - Product preparation issue [Unknown]
  - Paresis [Not Recovered/Not Resolved]
  - Muscle spasms [Recovering/Resolving]
  - Ear pain [Unknown]
  - Eyelid ptosis [Unknown]
  - Fatigue [Unknown]
  - Inappropriate schedule of product administration [Unknown]
  - Headache [Unknown]
  - Seizure [Unknown]
  - Discomfort [Unknown]
  - Muscular weakness [Recovering/Resolving]
  - Off label use [Unknown]
  - Facial pain [Recovering/Resolving]
  - Facial asymmetry [Recovering/Resolving]
  - Pain [Recovering/Resolving]
  - Loss of personal independence in daily activities [Unknown]
  - Nerve injury [Unknown]
  - Sleep disorder [Unknown]
  - Dystonia [Unknown]

NARRATIVE: CASE EVENT DATE: 2015
